FAERS Safety Report 11348434 (Version 1)
Quarter: 2015Q3

REPORT INFORMATION
  Report Type: Spontaneous
  Country: IT (occurrence: IT)
  Receive Date: 20150806
  Receipt Date: 20150806
  Transmission Date: 20151125
  Serious: Yes (Hospitalization)
  Sender: FDA-Public Use
  Company Number: PHHY2015IT092152

PATIENT
  Age: 33 Year
  Sex: Female

DRUGS (3)
  1. LORAZEPAM. [Suspect]
     Active Substance: LORAZEPAM
     Indication: DRUG ABUSE
     Dosage: 15 ML, ONCE/SINGLE
     Route: 048
     Dates: start: 20150621, end: 20150621
  2. EFFEXOR [Concomitant]
     Active Substance: VENLAFAXINE HYDROCHLORIDE
     Indication: PRODUCT USED FOR UNKNOWN INDICATION
     Dosage: 150 MG
     Route: 048
  3. LAROXYL [Suspect]
     Active Substance: AMITRIPTYLINE
     Indication: DRUG ABUSE
     Dosage: 15 ML, ONCE/SINGLE
     Route: 048
     Dates: start: 20150621, end: 20150621

REACTIONS (2)
  - Sopor [Recovered/Resolved]
  - Drug abuse [Recovered/Resolved]

NARRATIVE: CASE EVENT DATE: 20150621
